FAERS Safety Report 19042977 (Version 2)
Quarter: 2021Q1

REPORT INFORMATION
  Report Type: Spontaneous
  Country: PL (occurrence: PL)
  Receive Date: 20210322
  Receipt Date: 20210330
  Transmission Date: 20210420
  Serious: Yes (Other)
  Sender: FDA-Public Use
  Company Number: NVSC2021PL060335

PATIENT
  Age: 63 Year
  Sex: Male
  Weight: 71 kg

DRUGS (4)
  1. IRINOTECAN [Suspect]
     Active Substance: IRINOTECAN
     Indication: PANCREATIC CARCINOMA
     Dosage: 336.6MG
     Route: 042
     Dates: start: 20200324, end: 20200326
  2. 5?FLUOROURACIL ^EBEWE^ [Suspect]
     Active Substance: FLUOROURACIL
     Indication: PANCREATIC CARCINOMA
     Dosage: 748 MG
     Route: 040
     Dates: start: 20200324, end: 20200326
  3. CALCIUM FOLINATE [Suspect]
     Active Substance: LEUCOVORIN CALCIUM
     Indication: PANCREATIC CARCINOMA
     Dosage: UNK
     Route: 042
     Dates: start: 20200324, end: 20200326
  4. OXALIPLATIN. [Suspect]
     Active Substance: OXALIPLATIN
     Indication: PANCREATIC CARCINOMA
     Dosage: 158.95MG
     Route: 042
     Dates: start: 20200324, end: 20200326

REACTIONS (1)
  - Neutropenia [Unknown]

NARRATIVE: CASE EVENT DATE: 20200407
